FAERS Safety Report 22611614 (Version 2)
Quarter: 2023Q2

REPORT INFORMATION
  Report Type: Spontaneous
  Country: US (occurrence: US)
  Receive Date: 20230616
  Receipt Date: 20230623
  Transmission Date: 20230722
  Serious: No
  Sender: FDA-Public Use
  Company Number: US-002147023-NVSC2023US137107

PATIENT
  Sex: Female

DRUGS (2)
  1. XIIDRA [Suspect]
     Active Substance: LIFITEGRAST
     Indication: Dry eye
     Dosage: 1 DOSAGE FORM, Q12H, (1 DRP EACH EYE)
     Route: 047
  2. SUSTAIN [Concomitant]
     Indication: Dry eye
     Dosage: UNK
     Route: 065

REACTIONS (1)
  - Eye pain [Unknown]
